FAERS Safety Report 6828216-5 (Version None)
Quarter: 2010Q3

REPORT INFORMATION
  Report Type: 
  Country: None (occurrence: None)
  Receive Date: 20100709
  Receipt Date: 20070201
  Transmission Date: 20110219
  Serious: No
  Sender: FDA-Public Use
  Company Number: US-PFIZER INC-2007009360

PATIENT
  Sex: Female

DRUGS (4)
  1. CHANTIX [Suspect]
     Dates: start: 20070101
  2. PROZAC [Concomitant]
  3. XANAX [Concomitant]
  4. VITAMINS [Concomitant]

REACTIONS (7)
  - CONSTIPATION [None]
  - DISTURBANCE IN ATTENTION [None]
  - DRUG INEFFECTIVE [None]
  - EMOTIONAL DISORDER [None]
  - FEELING JITTERY [None]
  - FLATULENCE [None]
  - TREMOR [None]
